FAERS Safety Report 18718644 (Version 2)
Quarter: 2021Q1

REPORT INFORMATION
  Report Type: Spontaneous
  Country: JP (occurrence: JP)
  Receive Date: 20210108
  Receipt Date: 20210212
  Transmission Date: 20210419
  Serious: Yes (Other)
  Sender: FDA-Public Use
  Company Number: JP-BAYER-2020-261517

PATIENT
  Age: 71 Year
  Sex: Male

DRUGS (2)
  1. NUBEQA [Suspect]
     Active Substance: DAROLUTAMIDE
     Indication: PROSTATE CANCER
     Dosage: DAILY DOSE 1200 MG, BID
     Route: 048
     Dates: start: 20201104, end: 20201118
  2. CASODEX [Concomitant]
     Active Substance: BICALUTAMIDE
     Dates: end: 20201015

REACTIONS (2)
  - Decreased appetite [Recovered/Resolved]
  - Prostate cancer [None]

NARRATIVE: CASE EVENT DATE: 20201107
